FAERS Safety Report 8440283-4 (Version None)
Quarter: 2012Q2

REPORT INFORMATION
  Report Type: 
  Country: None (occurrence: None)
  Receive Date: 20120615
  Receipt Date: 20120601
  Transmission Date: 20120825
  Serious: Yes (Other)
  Sender: FDA-Public Use
  Company Number: DK-ROCHE-1077316

PATIENT

DRUGS (2)
  1. METRONIDAZOLE [Suspect]
     Indication: ABDOMINAL INFECTION
     Route: 042
  2. ROCEPHIN [Suspect]
     Indication: ABDOMINAL INFECTION
     Route: 042

REACTIONS (6)
  - INFECTION [None]
  - IMPAIRED HEALING [None]
  - SEPSIS [None]
  - PNEUMONIA [None]
  - CLOSTRIDIAL INFECTION [None]
  - ABSCESS [None]
